FAERS Safety Report 8890695 (Version 2)
Quarter: 2012Q4

REPORT INFORMATION
  Report Type: 
  Country: US (occurrence: US)
  Receive Date: 20121107
  Receipt Date: 20121119
  Transmission Date: 20130627
  Serious: Yes (Other)
  Sender: FDA-Public Use
  Company Number: US-BAUSCH-BL-2012-001594

PATIENT
  Age: 72 Year
  Sex: Male

DRUGS (4)
  1. BESIVANCE [Suspect]
     Indication: POSTOPERATIVE CARE
     Dosage: 1 Drop; Twice a day; Left eye
     Route: 047
     Dates: start: 20120930, end: 20121009
  2. BESIVANCE [Suspect]
     Indication: OFF LABEL USE
  3. BROMDAY 0.09% [Concomitant]
     Indication: POSTOPERATIVE CARE
     Dosage: Drop; Ophthalmic
     Route: 047
  4. DIFLUPREDNATE [Concomitant]
     Indication: POSTOPERATIVE CARE

REACTIONS (1)
  - Endophthalmitis [Not Recovered/Not Resolved]
